FAERS Safety Report 24087769 (Version 1)
Quarter: 2024Q3

REPORT INFORMATION
  Report Type: Report from Study
  Country: PR (occurrence: PR)
  Receive Date: 20240715
  Receipt Date: 20240715
  Transmission Date: 20241016
  Serious: Yes (Other)
  Sender: ABBVIE
  Company Number: PR-ABBVIE-5835158

PATIENT
  Sex: Female
  Weight: 102.05 kg

DRUGS (2)
  1. HUMIRA [Suspect]
     Active Substance: ADALIMUMAB
     Indication: Rheumatoid arthritis
     Dosage: 40MG/0.8ML? FORM STRENGTH: 40 MG
     Route: 058
     Dates: start: 20150601
  2. HUMIRA [Suspect]
     Active Substance: ADALIMUMAB
     Dosage: 40MG/0.4ML? FORM STRENGTH: 40 MG
     Route: 058

REACTIONS (7)
  - Sleep apnoea syndrome [Not Recovered/Not Resolved]
  - Nasal congestion [Recovered/Resolved]
  - Cough [Recovered/Resolved]
  - Rash macular [Not Recovered/Not Resolved]
  - Sinusitis [Recovered/Resolved]
  - Dizziness [Not Recovered/Not Resolved]
  - SARS-CoV-2 test positive [Recovering/Resolving]

NARRATIVE: CASE EVENT DATE: 20170101
